FAERS Safety Report 21395896 (Version 1)
Quarter: 2022Q3

REPORT INFORMATION
  Report Type: Spontaneous
  Country: US (occurrence: None)
  Receive Date: 20220930
  Receipt Date: 20220930
  Transmission Date: 20221027
  Serious: Yes (Hospitalization)
  Sender: FDA-Public Use
  Company Number: 2022A331229

PATIENT
  Age: 759 Month
  Sex: Male
  Weight: 126.1 kg

DRUGS (1)
  1. SYMBICORT [Suspect]
     Active Substance: BUDESONIDE\FORMOTEROL FUMARATE DIHYDRATE
     Indication: Chronic obstructive pulmonary disease
     Dosage: 160 MCG/ 4.5 MCG 2 PUFFS, TWO TIMES A DAY
     Route: 055

REACTIONS (13)
  - COVID-19 [Unknown]
  - Anxiety [Unknown]
  - Condition aggravated [Unknown]
  - Dyspnoea [Unknown]
  - Stress [Unknown]
  - Sleep disorder due to general medical condition, insomnia type [Unknown]
  - Wrong technique in device usage process [Unknown]
  - Device use issue [Unknown]
  - Incorrect dose administered by device [Unknown]
  - Wrong technique in product usage process [Unknown]
  - Product packaging quantity issue [Unknown]
  - Drug delivery system issue [Unknown]
  - Device malfunction [Unknown]

NARRATIVE: CASE EVENT DATE: 20220701
